FAERS Safety Report 12213178 (Version 1)
Quarter: 2016Q1

REPORT INFORMATION
  Report Type: Spontaneous
  Country: PT (occurrence: PT)
  Receive Date: 20160328
  Receipt Date: 20160328
  Transmission Date: 20160526
  Serious: Yes (Hospitalization, Other)
  Sender: FDA-Public Use
  Company Number: PT-PAR PHARMACEUTICAL COMPANIES-2016SCPR015271

PATIENT

DRUGS (2)
  1. VENLAFAXINE HYDROCHLORIDE. [Suspect]
     Active Substance: VENLAFAXINE HYDROCHLORIDE
     Indication: PRODUCT USED FOR UNKNOWN INDICATION
     Dosage: UNK UNK, UNKNOWN
     Route: 064
  2. ALPRAZOLAM. [Interacting]
     Active Substance: ALPRAZOLAM
     Indication: PRODUCT USED FOR UNKNOWN INDICATION
     Dosage: UNK UNK, UNKNOWN
     Route: 064

REACTIONS (11)
  - Drug interaction [Unknown]
  - Mitral valve incompetence [Recovered/Resolved]
  - Hepatomegaly [Recovered/Resolved]
  - Toxicity to various agents [Unknown]
  - Selective eating disorder [Recovered/Resolved]
  - Ventricular dysfunction [Recovered/Resolved]
  - Poor sucking reflex [Recovered/Resolved]
  - Cardiomegaly [Recovered/Resolved]
  - Neonatal respiratory distress syndrome [Recovered/Resolved]
  - Foetal exposure during pregnancy [Unknown]
  - Tachycardia [Recovered/Resolved]
